FAERS Safety Report 9228595 (Version 2)
Quarter: 2013Q3

REPORT INFORMATION
  Report Type: Report from Study
  Country: IT (occurrence: IT)
  Receive Date: 20130412
  Receipt Date: 20130702
  Transmission Date: 20140515
  Serious: Yes (Death, Life-Threatening, Hospitalization, Disabling, Other)
  Sender: FDA-Public Use
  Company Number: IT-CELGENEUS-083-22393-13040618

PATIENT
  Age: 75 Year
  Sex: Male

DRUGS (13)
  1. ISTODAX [Suspect]
     Indication: MYCOSIS FUNGOIDES
     Dosage: 18APR DAY+8, 26APR DAY+15
     Route: 041
     Dates: start: 20120411
  2. ISTODAX [Suspect]
     Indication: MYCOSIS FUNGOIDES
     Route: 041
     Dates: start: 20121231
  3. GEMCITABINE [Concomitant]
     Indication: MYCOSIS FUNGOIDES
     Dosage: DAY+8
     Route: 065
     Dates: start: 20120807
  4. GEMCITABINE [Concomitant]
     Indication: MYCOSIS FUNGOIDES
     Route: 065
     Dates: start: 20121231
  5. LASIX [Concomitant]
     Indication: RESPIRATORY FAILURE
     Route: 048
     Dates: start: 201201, end: 20130329
  6. KANRENOL [Concomitant]
     Indication: RESPIRATORY FAILURE
     Route: 048
     Dates: start: 201201, end: 20130329
  7. ZYLORIC [Concomitant]
     Indication: HYPERURICAEMIA
     Route: 048
     Dates: start: 201201, end: 20130329
  8. SPIRIVA [Concomitant]
     Indication: RESPIRATORY FAILURE
     Route: 048
     Dates: start: 201201, end: 20130329
  9. AVODART [Concomitant]
     Indication: BENIGN PROSTATIC HYPERPLASIA
     Route: 048
     Dates: start: 201201, end: 20130329
  10. XATRAL [Concomitant]
     Indication: BENIGN PROSTATIC HYPERPLASIA
     Route: 048
     Dates: start: 201201, end: 20130329
  11. SOLDESAM [Concomitant]
     Indication: RESPIRATORY FAILURE
     Route: 048
     Dates: start: 201201, end: 20130329
  12. LEXOTAN [Concomitant]
     Indication: INSOMNIA
     Route: 048
     Dates: start: 201201, end: 20130329
  13. ATARAX [Concomitant]
     Indication: PRURITUS
     Route: 048
     Dates: start: 201201, end: 20130329

REACTIONS (11)
  - Pulmonary embolism [Fatal]
  - Acute respiratory failure [Unknown]
  - Pneumonia [Unknown]
  - Anaemia macrocytic [Not Recovered/Not Resolved]
  - Fall [Not Recovered/Not Resolved]
  - Femur fracture [Not Recovered/Not Resolved]
  - Acute respiratory failure [Fatal]
  - Pyrexia [Unknown]
  - Pyrexia [Recovered/Resolved]
  - Mycosis fungoides [Unknown]
  - Mycosis fungoides [Unknown]
